FAERS Safety Report 7402362-X (Version None)
Quarter: 2011Q2

REPORT INFORMATION
  Report Type: 
  Country: None (occurrence: None)
  Receive Date: 20110408
  Receipt Date: 20110401
  Transmission Date: 20111010
  Serious: Yes (Other)
  Sender: FDA-Public Use
  Company Number: US-BRISTOL-MYERS SQUIBB COMPANY-15653488

PATIENT
  Age: 54 Year
  Sex: Female

DRUGS (2)
  1. CARBIDOPA AND LEVODOPA [Suspect]
     Dosage: 1 DF=CARBIDOPA  + LEVODOPA 75MG/100MG
  2. SELEGILINE [Concomitant]
     Indication: PARKINSON'S DISEASE

REACTIONS (1)
  - SCHIZOPHRENIA [None]
